FAERS Safety Report 7344407-1 (Version None)
Quarter: 2011Q1

REPORT INFORMATION
  Report Type: 
  Country: None (occurrence: None)
  Receive Date: 20110310
  Receipt Date: 20110112
  Transmission Date: 20110831
  Serious: No
  Sender: FDA-Public Use
  Company Number: A0905402A

PATIENT
  Age: 26 Year
  Sex: Female

DRUGS (1)
  1. WALGREENS NICOTINE LOZENGE MINT 4MG [Suspect]
     Dates: start: 20110109, end: 20110110

REACTIONS (7)
  - TONGUE BLISTERING [None]
  - THERMAL BURN [None]
  - TONGUE DISORDER [None]
  - TONGUE ULCERATION [None]
  - STOMATITIS [None]
  - GLOSSODYNIA [None]
  - ORAL PAIN [None]
